FAERS Safety Report 4830504-9 (Version None)
Quarter: 2005Q4

REPORT INFORMATION
  Report Type: 
  Country: None (occurrence: None)
  Receive Date: 20051114
  Receipt Date: 20051102
  Transmission Date: 20060501
  Serious: Yes (Death, Hospitalization)
  Sender: FDA-Public Use
  Company Number: 2005-11-0135

PATIENT
  Sex: Male

DRUGS (4)
  1. TEMODAR [Suspect]
     Indication: GLIOBLASTOMA MULTIFORME
     Dosage: 140-180MG QD ORAL; 140 MG QD ORAL; 140 MG QD ORAL; 180 MG QD ORAL
     Route: 048
     Dates: end: 20050101
  2. TEMODAR [Suspect]
     Indication: GLIOBLASTOMA MULTIFORME
     Dosage: 140-180MG QD ORAL; 140 MG QD ORAL; 140 MG QD ORAL; 180 MG QD ORAL
     Route: 048
     Dates: start: 20050101, end: 20050101
  3. TEMODAR [Suspect]
     Indication: GLIOBLASTOMA MULTIFORME
     Dosage: 140-180MG QD ORAL; 140 MG QD ORAL; 140 MG QD ORAL; 180 MG QD ORAL
     Route: 048
  4. RADIATION THERAPY NO DOSE FORM [Suspect]
     Indication: GLIOBLASTOMA MULTIFORME
     Dosage: X-RAY THERAPY

REACTIONS (7)
  - BONE MARROW FAILURE [None]
  - CONTUSION [None]
  - FULL BLOOD COUNT DECREASED [None]
  - HAEMORRHAGE [None]
  - INCORRECT DOSE ADMINISTERED [None]
  - PNEUMONIA [None]
  - RENAL FAILURE [None]
